FAERS Safety Report 5960217-1 (Version None)
Quarter: 2008Q4

REPORT INFORMATION
  Report Type: 
  Country: None (occurrence: None)
  Receive Date: 20081120
  Receipt Date: 20081112
  Transmission Date: 20090506
  Serious: Yes (Other)
  Sender: FDA-Public Use
  Company Number: US-ELI_LILLY_AND_COMPANY-US200811002667

PATIENT
  Sex: Male

DRUGS (10)
  1. BYETTA [Suspect]
     Indication: TYPE 2 DIABETES MELLITUS
     Dosage: 5 UG, 2/D
     Route: 058
     Dates: start: 20070101, end: 20080801
  2. BYETTA [Suspect]
     Dosage: 5 UG, 2/D
     Route: 058
     Dates: start: 20081101
  3. METFORMIN HCL [Concomitant]
     Dosage: UNK, 2/D
     Route: 048
  4. ANTI-DIABETICS [Concomitant]
     Dosage: UNK, 2/D
     Route: 048
  5. CADUET [Concomitant]
     Dosage: UNK, UNKNOWN
     Route: 048
  6. LISINOPRIL [Concomitant]
     Dosage: UNK, UNKNOWN
     Route: 048
  7. ASPIRIN [Concomitant]
     Dosage: UNK, UNKNOWN
     Route: 048
  8. MULTI-VITAMIN [Concomitant]
     Dosage: UNK, UNKNOWN
  9. CALCIUM [Concomitant]
     Dosage: UNK, QOD
     Route: 048
  10. TOPROL-XL [Concomitant]
     Dosage: UNK, UNKNOWN
     Route: 048

REACTIONS (7)
  - ALLERGY TEST POSITIVE [None]
  - FEELING HOT [None]
  - HYPERSENSITIVITY [None]
  - LYMPHADENOPATHY [None]
  - NAUSEA [None]
  - SWOLLEN TONGUE [None]
  - WEIGHT DECREASED [None]
